FAERS Safety Report 24618017 (Version 1)
Quarter: 2024Q4

REPORT INFORMATION
  Report Type: Report from Study
  Country: BR (occurrence: BR)
  Receive Date: 20241114
  Receipt Date: 20241114
  Transmission Date: 20250115
  Serious: No
  Sender: JOHNSON AND JOHNSON
  Company Number: BR-JNJFOC-20241124455

PATIENT
  Age: 62 Year
  Sex: Female
  Weight: 73 kg

DRUGS (2)
  1. TALVEY [Suspect]
     Active Substance: TALQUETAMAB-TGVS
     Indication: Product used for unknown indication
     Dosage: 20MG/ML
     Route: 058
  2. TALVEY [Suspect]
     Active Substance: TALQUETAMAB-TGVS
     Dosage: 40MG/ML
     Route: 058

REACTIONS (1)
  - Product prescribing error [Unknown]
